FAERS Safety Report 9207448 (Version 1)
Quarter: 2013Q2

REPORT INFORMATION
  Report Type: Spontaneous
  Country: US (occurrence: US)
  Receive Date: 20130403
  Receipt Date: 20130403
  Transmission Date: 20140414
  Serious: Yes (Death)
  Sender: FDA-Public Use
  Company Number: US-ELI_LILLY_AND_COMPANY-US201111005877

PATIENT
  Age: 68 Year
  Sex: Female

DRUGS (4)
  1. FORTEO [Suspect]
     Indication: OSTEOPOROSIS
     Dosage: 20 UG, QD
     Route: 058
     Dates: start: 201110
  2. FORTEO [Suspect]
     Dosage: 20 UG, QD
     Route: 058
  3. FORTEO [Suspect]
     Dosage: 20 UG, QD
     Route: 058
     Dates: end: 201202
  4. FORTEO [Suspect]
     Dosage: 20 UG, UNK
     Route: 058

REACTIONS (14)
  - Death [Fatal]
  - Cardiac disorder [Unknown]
  - Heart rate irregular [Unknown]
  - Hypersomnia [Unknown]
  - Decreased appetite [Recovered/Resolved]
  - Malaise [Unknown]
  - Migraine [Recovered/Resolved]
  - Bronchitis [Unknown]
  - Vitamin D decreased [Unknown]
  - Angina pectoris [Unknown]
  - Pneumonia [Not Recovered/Not Resolved]
  - Dyspepsia [Recovered/Resolved]
  - Nausea [Recovered/Resolved]
  - Malaise [Unknown]
